FAERS Safety Report 11395199 (Version 1)
Quarter: 2015Q3

REPORT INFORMATION
  Report Type: Other
  Country: GB (occurrence: GB)
  Receive Date: 20150819
  Receipt Date: 20150819
  Transmission Date: 20151125
  Serious: Yes (Other)
  Sender: FDA-Public Use
  Company Number: GB-MYLANLABS-2015M1026782

PATIENT

DRUGS (10)
  1. FLEXITOL [Concomitant]
     Indication: DRY SKIN
     Dosage: 1 DF, BID
     Dates: start: 20150728
  2. GLICLAZIDE [Concomitant]
     Active Substance: GLICLAZIDE
     Dosage: BEFORE BREAKFAST AND DINNER
     Dates: start: 20141121
  3. INDAPAMIDE. [Concomitant]
     Active Substance: INDAPAMIDE
     Dosage: EACH MORNING
     Dates: start: 20150727
  4. METFORMIN [Concomitant]
     Active Substance: METFORMIN HYDROCHLORIDE
     Dosage: 1 DF, BID
     Dates: start: 20141121
  5. TADALAFIL [Concomitant]
     Active Substance: TADALAFIL
     Dosage: USE AS DIRECTED
     Dates: start: 20150727, end: 20150728
  6. CALCIPOTRIOL [Concomitant]
     Active Substance: CALCIPOTRIENE
     Dosage: 1 DF, QD
     Dates: start: 20150410
  7. AMLODIPINE BESILATE [Suspect]
     Active Substance: AMLODIPINE BESYLATE
     Dosage: UNK
     Dates: start: 20141121
  8. PIOGLITAZONE. [Concomitant]
     Active Substance: PIOGLITAZONE
     Dosage: 1 DF, QD
     Dates: start: 20141121
  9. SIMVASTATIN. [Concomitant]
     Active Substance: SIMVASTATIN
     Dosage: AT NIGHT
     Dates: start: 20141121
  10. SILDENAFIL. [Concomitant]
     Active Substance: SILDENAFIL
     Dosage: USE AS DIRECTED
     Dates: start: 20150604, end: 20150702

REACTIONS (2)
  - Gingival hyperplasia [Unknown]
  - Gingivitis [Unknown]

NARRATIVE: CASE EVENT DATE: 20150728
